FAERS Safety Report 14056453 (Version 4)
Quarter: 2018Q1

REPORT INFORMATION
  Report Type: Spontaneous
  Country: US (occurrence: US)
  Receive Date: 20171006
  Receipt Date: 20180226
  Transmission Date: 20180508
  Serious: Yes (Death, Hospitalization, Other)
  Sender: FDA-Public Use
  Company Number: US-PFIZER INC-2017424176

PATIENT
  Age: 72 Year
  Sex: Female
  Weight: 87.9 kg

DRUGS (21)
  1. UPTRAVI [Concomitant]
     Active Substance: SELEXIPAG
     Indication: FLUID RETENTION
     Dosage: UNK
     Dates: end: 20170920
  2. BUMETANIDE. [Concomitant]
     Active Substance: BUMETANIDE
     Dosage: UNK
  3. BUMEX [Concomitant]
     Active Substance: BUMETANIDE
     Dosage: 2 MG, 2X/DAY
     Route: 048
  4. MULTIVITAMINS /00116001/ [Concomitant]
     Active Substance: VITAMINS
     Dosage: UNK
  5. CALCIUM 500+D [Concomitant]
     Active Substance: CALCIUM\VITAMIN D
     Dosage: UNK (CALCIUM 500 + D 500-125 MG)
  6. ATORVASTATIN [Concomitant]
     Active Substance: ATORVASTATIN
     Dosage: 10 MG, 1X/DAY
  7. REVATIO [Suspect]
     Active Substance: SILDENAFIL CITRATE
     Dosage: 20MG FOUR TABLETS THREE TIMES A DAY
     Route: 048
     Dates: start: 20170311
  8. JANUVIA [Concomitant]
     Active Substance: SITAGLIPTIN PHOSPHATE
     Dosage: 100 MG, UNK
  9. POTASSIUM [Concomitant]
     Active Substance: POTASSIUM
     Dosage: UNK
  10. LEVOTHYROXINE SODIUM. [Concomitant]
     Active Substance: LEVOTHYROXINE SODIUM
     Dosage: UNK
  11. ORENITRAM [Concomitant]
     Active Substance: TREPROSTINIL
     Dosage: 0.125 MG, UNK
     Route: 048
     Dates: end: 20170923
  12. LEVOTHYROXINE. [Concomitant]
     Active Substance: LEVOTHYROXINE
     Dosage: UNK
  13. REVATIO [Suspect]
     Active Substance: SILDENAFIL CITRATE
     Indication: COR PULMONALE
     Dosage: 40 MG, 3X/DAY (2TID 90 DAYS, 3)
     Dates: start: 20100402
  14. REVATIO [Suspect]
     Active Substance: SILDENAFIL CITRATE
     Dosage: 20 MG, 3X/DAY
     Dates: start: 20170323
  15. REVATIO [Suspect]
     Active Substance: SILDENAFIL CITRATE
     Indication: PULMONARY HYPERTENSION
     Dosage: 20 MG, 1X/DAY
     Dates: start: 2010
  16. IRON [Concomitant]
     Active Substance: IRON
     Dosage: 325 MG, UNK
     Route: 048
  17. VISION FORMULA [Concomitant]
     Dosage: UNK
  18. ATORVASTATIN CALCIUM. [Concomitant]
     Active Substance: ATORVASTATIN CALCIUM
     Dosage: 10 MG, UNK
  19. PRORENAL MULTIVITAMIN [Concomitant]
     Dosage: UNK
  20. METOLAZONE. [Concomitant]
     Active Substance: METOLAZONE
     Dosage: 5 MG, UNK (DOSAGE: 90 DAYS, 3)
     Route: 048
  21. POTASSIUM CHLORIDE ER [Concomitant]
     Active Substance: POTASSIUM CHLORIDE
     Dosage: UNK (DOSAGE: 90 DAYS, 1)

REACTIONS (7)
  - Condition aggravated [Unknown]
  - Dyspnoea [Fatal]
  - Fluid retention [Unknown]
  - Right ventricular failure [Unknown]
  - Oxygen saturation decreased [Fatal]
  - Oedema [Unknown]
  - Renal impairment [Unknown]

NARRATIVE: CASE EVENT DATE: 20170928
